FAERS Safety Report 9460956 (Version 4)
Quarter: 2015Q1

REPORT INFORMATION
  Report Type: Report from Study
  Country: US (occurrence: US)
  Receive Date: 20130816
  Receipt Date: 20150311
  Transmission Date: 20150721
  Serious: Yes (Hospitalization)
  Sender: FDA-Public Use
  Company Number: US-BIOGENIDEC-2013BI075019

PATIENT
  Age: 61 Year
  Sex: Male

DRUGS (1)
  1. TYSABRI [Suspect]
     Active Substance: NATALIZUMAB
     Indication: MULTIPLE SCLEROSIS
     Route: 042
     Dates: start: 20111122

REACTIONS (10)
  - Upper limb fracture [Not Recovered/Not Resolved]
  - Muscle fatigue [Unknown]
  - Fall [Recovered/Resolved]
  - Urine odour abnormal [Recovered/Resolved]
  - Asthenia [Unknown]
  - Blood disorder [Not Recovered/Not Resolved]
  - Paraesthesia [Unknown]
  - White blood cell count increased [Not Recovered/Not Resolved]
  - Balance disorder [Not Recovered/Not Resolved]
  - Urinary tract infection [Recovered/Resolved]

NARRATIVE: CASE EVENT DATE: 2013
